FAERS Safety Report 5930198-5 (Version None)
Quarter: 2008Q4

REPORT INFORMATION
  Report Type: 
  Country: None (occurrence: None)
  Receive Date: 20081009
  Receipt Date: 20080314
  Transmission Date: 20090506
  Serious: Yes (Other)
  Sender: FDA-Public Use
  Company Number: PHEH2008US02814

PATIENT
  Age: 59 Year
  Sex: Female
  Weight: 88.9 kg

DRUGS (1)
  1. ZOMETA [Suspect]
     Dosage: Q28DAYS, INTRAVENOUS
     Route: 042
     Dates: start: 20050228, end: 20080215

REACTIONS (4)
  - BONE GRAFT [None]
  - HEARING IMPAIRED [None]
  - OSTEONECROSIS [None]
  - TOOTH EXTRACTION [None]
